FAERS Safety Report 9104144 (Version 1)
Quarter: 2013Q1

REPORT INFORMATION
  Report Type: Spontaneous
  Country: GR (occurrence: GR)
  Receive Date: 20130219
  Receipt Date: 20130219
  Transmission Date: 20140127
  Serious: No
  Sender: FDA-Public Use
  Company Number: PHHY2013GR015008

PATIENT
  Age: 63 Year
  Sex: Male

DRUGS (2)
  1. IMATINIB [Suspect]
     Indication: CHRONIC MYELOID LEUKAEMIA
     Dosage: 400 MG, DAILY
  2. NILOTINIB [Suspect]
     Dosage: 400 MG, BID

REACTIONS (1)
  - Gene mutation identification test positive [Unknown]
